FAERS Safety Report 5593070-9 (Version None)
Quarter: 2008Q1

REPORT INFORMATION
  Report Type: 
  Country: None (occurrence: None)
  Receive Date: 20080116
  Receipt Date: 20080111
  Transmission Date: 20080703
  Serious: Yes (Death, Hospitalization)
  Sender: FDA-Public Use
  Company Number: GB-JNJFOC-20080100348

PATIENT
  Age: 25 Year
  Sex: Male

DRUGS (12)
  1. IBUPROFEN [Suspect]
  2. IBUPROFEN [Suspect]
     Indication: PAIN IN EXTREMITY
  3. CIPROFLOXACIN [Suspect]
     Indication: CHEST DISCOMFORT
  4. CLARITHROMYCIN [Suspect]
     Indication: CHEST DISCOMFORT
  5. COMBIVIR [Suspect]
     Indication: HIV INFECTION
  6. CO-TRIMOXAZOLE [Suspect]
     Indication: ANTIFUNGAL PROPHYLAXIS
  7. EFAVIRENZ [Suspect]
     Indication: HIV INFECTION
  8. LAMIVUDINE [Suspect]
     Indication: HIV INFECTION
  9. NEVIRAPINE [Suspect]
     Indication: HIV INFECTION
  10. TENOFOVIR DISOPROXIL FUMARATE [Suspect]
     Indication: HIV INFECTION
  11. BACTRIM [Suspect]
     Indication: PROPHYLAXIS
  12. LOPERAMIDE HCL [Concomitant]
     Indication: DIARRHOEA

REACTIONS (2)
  - SEPSIS [None]
  - VANISHING BILE DUCT SYNDROME [None]
